FAERS Safety Report 8149926-6 (Version None)
Quarter: 2012Q1

REPORT INFORMATION
  Report Type: 
  Country: None (occurrence: None)
  Receive Date: 20120218
  Receipt Date: 20111215
  Transmission Date: 20120608
  Serious: No
  Sender: FDA-Public Use
  Company Number: US-ALLERGAN-1116506US

PATIENT
  Sex: Female

DRUGS (2)
  1. OCCIPITAL STIMULATOR [Concomitant]
     Indication: MIGRAINE
  2. BOTULINUM TOXIN TYPE A [Suspect]
     Indication: MIGRAINE
     Dosage: UNK
     Route: 030

REACTIONS (6)
  - PAIN [None]
  - CHILLS [None]
  - PYREXIA [None]
  - MIGRAINE [None]
  - MUSCLE SPASMS [None]
  - DRUG INEFFECTIVE [None]
